FAERS Safety Report 6663418-2 (Version None)
Quarter: 2010Q2

REPORT INFORMATION
  Report Type: 
  Country: None (occurrence: None)
  Receive Date: 20100401
  Receipt Date: 20091109
  Transmission Date: 20101027
  Serious: Yes (Other)
  Sender: FDA-Public Use
  Company Number: JP-BRISTOL-MYERS SQUIBB COMPANY-14856595

PATIENT
  Age: 85 Year
  Sex: Female

DRUGS (6)
  1. IRBETAN [Suspect]
     Indication: HYPERTENSION
     Route: 048
     Dates: start: 20090310
  2. NORVASC [Concomitant]
     Indication: HYPERTENSION
  3. FERROMIA [Concomitant]
     Indication: ANAEMIA
  4. LOXONIN [Concomitant]
  5. SELBEX [Concomitant]
     Indication: PROPHYLAXIS
  6. LASIX [Concomitant]

REACTIONS (2)
  - ANAEMIA [None]
  - RENAL IMPAIRMENT [None]
